FAERS Safety Report 14954237 (Version 1)
Quarter: 2018Q2

REPORT INFORMATION
  Report Type: Spontaneous
  Country: US (occurrence: US)
  Receive Date: 20180530
  Receipt Date: 20180530
  Transmission Date: 20180711
  Serious: Yes (Death, Life-Threatening, Other)
  Sender: FDA-Public Use
  Company Number: US-PFIZER INC-2017487859

PATIENT
  Sex: Male

DRUGS (2)
  1. CORDARONE [Suspect]
     Active Substance: AMIODARONE HYDROCHLORIDE
     Indication: ATRIAL FIBRILLATION
     Dosage: 200 MG, UNK
     Route: 048
     Dates: start: 201503
  2. AMIODARONE /00133102/ [Suspect]
     Active Substance: AMIODARONE
     Indication: ATRIAL FIBRILLATION
     Dosage: 200 MG,UNK

REACTIONS (5)
  - Pulmonary fibrosis [Fatal]
  - Syncope [Unknown]
  - Rash [Unknown]
  - Vision blurred [Unknown]
  - Depression [Unknown]

NARRATIVE: CASE EVENT DATE: 2016
